FAERS Safety Report 8085234-X (Version None)
Quarter: 2012Q1

REPORT INFORMATION
  Report Type: 
  Country: None (occurrence: None)
  Receive Date: 20120128
  Receipt Date: 20110328
  Transmission Date: 20120608
  Serious: No
  Sender: FDA-Public Use
  Company Number: US-ABBOTT-11P-163-0714975-00

PATIENT
  Sex: Female
  Weight: 52.21 kg

DRUGS (2)
  1. HUMIRA [Suspect]
     Route: 058
     Dates: start: 20110301, end: 20110301
  2. HUMIRA [Suspect]
     Indication: CROHN'S DISEASE
     Dosage: BEGAN WITH LOADING DOSE
     Route: 058
     Dates: start: 20110301, end: 20110301

REACTIONS (1)
  - STAPHYLOCOCCAL INFECTION [None]
